FAERS Safety Report 7892359-8 (Version None)
Quarter: 2011Q4

REPORT INFORMATION
  Report Type: 
  Country: None (occurrence: None)
  Receive Date: 20111101
  Receipt Date: 20111018
  Transmission Date: 20120403
  Serious: Yes (Hospitalization)
  Sender: FDA-Public Use
  Company Number: JPI-P-010880

PATIENT
  Age: 59 Year
  Sex: Male
  Weight: 52.1637 kg

DRUGS (2)
  1. XYREM [Suspect]
     Indication: SLEEP DISORDER
     Dosage: 4.5 GM (2.25 GM,2 IN 1 D),ORAL ; 7 GM (3.5 GM,2 IN 1 D),ORAL ; 7 GM (3.5 GM,2 IN 1 D),ORAL
     Route: 048
     Dates: start: 20070514
  2. XYREM [Suspect]
     Indication: SLEEP DISORDER
     Dosage: 4.5 GM (2.25 GM,2 IN 1 D),ORAL ; 7 GM (3.5 GM,2 IN 1 D),ORAL ; 7 GM (3.5 GM,2 IN 1 D),ORAL
     Route: 048
     Dates: end: 20100501

REACTIONS (4)
  - DYSPHAGIA [None]
  - ASPIRATION [None]
  - HUNGER [None]
  - CHOKING [None]
